FAERS Safety Report 7561174-7 (Version None)
Quarter: 2011Q2

REPORT INFORMATION
  Report Type: 
  Country: None (occurrence: None)
  Receive Date: 20110621
  Receipt Date: 20100720
  Transmission Date: 20111010
  Serious: No
  Sender: FDA-Public Use
  Company Number: US-ASTRAZENECA-2010SE33785

PATIENT
  Age: 9 Year
  Sex: Female

DRUGS (1)
  1. PULMICORT [Suspect]
     Indication: ASTHMA
     Route: 055
     Dates: start: 20060101

REACTIONS (1)
  - VULVOVAGINAL CANDIDIASIS [None]
